FAERS Safety Report 5413584-1 (Version None)
Quarter: 2007Q3

REPORT INFORMATION
  Report Type: 
  Country: None (occurrence: None)
  Receive Date: 20070810
  Receipt Date: 20070727
  Transmission Date: 20080115
  Serious: Yes (Death)
  Sender: FDA-Public Use
  Company Number: 135

PATIENT
  Sex: Female

DRUGS (1)
  1. FAZACLO 25 MG ODT   AZUR PHARMA [Suspect]
     Dosage: 25 MG PO DAILY
     Route: 048
     Dates: start: 20061018, end: 20070706

REACTIONS (1)
  - DEATH [None]
